FAERS Safety Report 25157838 (Version 1)
Quarter: 2025Q2

REPORT INFORMATION
  Report Type: Spontaneous
  Country: GB (occurrence: GB)
  Receive Date: 20250403
  Receipt Date: 20250403
  Transmission Date: 20250716
  Serious: Yes (Other)
  Sender: TEVA
  Company Number: GB-MHRA-TPP33538778C5491237YC1743428717164

PATIENT
  Age: 80 Year
  Sex: Female
  Weight: 77 kg

DRUGS (7)
  1. DOXYCYCLINE [Suspect]
     Active Substance: DOXYCYCLINE
     Indication: Ill-defined disorder
     Route: 048
     Dates: start: 20250311, end: 20250317
  2. DOXYCYCLINE [Suspect]
     Active Substance: DOXYCYCLINE
     Indication: Ill-defined disorder
     Route: 048
     Dates: start: 20250310
  3. RAMIPRIL [Concomitant]
     Active Substance: RAMIPRIL
     Indication: Ill-defined disorder
     Dosage: AT NIGHT
     Dates: start: 20240802
  4. LANSOPRAZOLE [Concomitant]
     Active Substance: LANSOPRAZOLE
     Indication: Ill-defined disorder
     Dosage: 30 MINUTES BEFORE BREAKFAST
     Route: 048
     Dates: start: 20240802
  5. VENTOLIN [Concomitant]
     Active Substance: ALBUTEROL SULFATE
     Indication: Ill-defined disorder
     Dates: start: 20240702
  6. DAPAGLIFLOZIN [Concomitant]
     Active Substance: DAPAGLIFLOZIN
     Indication: Ill-defined disorder
     Dosage: IN THE MORNING
     Route: 048
     Dates: start: 20240802
  7. TRULICITY [Concomitant]
     Active Substance: DULAGLUTIDE
     Indication: Ill-defined disorder
     Dates: start: 20240802

REACTIONS (3)
  - Gastrooesophageal reflux disease [Recovered/Resolved]
  - Discomfort [Unknown]
  - Dyspepsia [Unknown]
